FAERS Safety Report 21130477 (Version 2)
Quarter: 2023Q1

REPORT INFORMATION
  Report Type: Spontaneous
  Country: CN (occurrence: None)
  Receive Date: 20220726
  Receipt Date: 20230217
  Transmission Date: 20230418
  Serious: Yes (Other)
  Sender: FDA-Public Use
  Company Number: CN-ROCHE-3143793

PATIENT
  Age: 49 Year
  Sex: Female

DRUGS (12)
  1. HERCEPTIN [Suspect]
     Active Substance: TRASTUZUMAB
     Indication: Breast cancer
     Dosage: WPH
     Route: 065
     Dates: start: 201908
  2. KADCYLA [Suspect]
     Active Substance: ADO-TRASTUZUMAB EMTANSINE
     Indication: Breast cancer
     Route: 065
     Dates: start: 20220115
  3. DOCETAXEL [Concomitant]
     Active Substance: DOCETAXEL
     Indication: Breast cancer
  4. PIRARUBICIN [Concomitant]
     Active Substance: PIRARUBICIN
     Indication: Breast cancer
  5. CYCLOPHOSPHAMIDE [Concomitant]
     Active Substance: CYCLOPHOSPHAMIDE
     Indication: Breast cancer
  6. PACLITAXEL [Concomitant]
     Active Substance: PACLITAXEL
     Indication: Breast cancer
  7. CAPECITABINE [Concomitant]
     Active Substance: CAPECITABINE
     Indication: Breast cancer
     Route: 048
  8. PYROTINIB [Concomitant]
     Active Substance: PYROTINIB
     Indication: Breast cancer
     Dosage: VINORELBINE +INETETAMAB +PYROTINIB REGIMEN FOR 3 CYCLES, /OCT/2022 TO/FEB/2023
     Dates: start: 202210
  9. PYROTINIB [Concomitant]
     Active Substance: PYROTINIB
     Dosage: /FEB/2021 TO /JAN/2022
  10. ZOLEDRONIC ACID [Concomitant]
     Active Substance: ZOLEDRONIC ACID
     Indication: Breast cancer
     Dates: start: 20220115
  11. VINORELBINE [Concomitant]
     Active Substance: VINORELBINE TARTRATE
     Dosage: VINORELBINE +INETETAMAB +PYROTINIB REGIMEN FOR 3 CYCLES, OCT-2022 TO FEB-2023
     Dates: start: 202210
  12. INVESTIGATIONAL PRODUCT [Concomitant]
     Active Substance: INVESTIGATIONAL PRODUCT
     Dosage: VINORELBINE +INETETAMAB +PYROTINIB REGIMEN FOR 3 CYCLES, OCT-2022 TO FEB-
     Dates: start: 202210

REACTIONS (3)
  - Palmar-plantar erythrodysaesthesia syndrome [Unknown]
  - Nausea [Unknown]
  - Vomiting [Unknown]

NARRATIVE: CASE EVENT DATE: 20220126
